FAERS Safety Report 16771046 (Version 1)
Quarter: 2019Q3

REPORT INFORMATION
  Report Type: Spontaneous
  Country: US (occurrence: US)
  Receive Date: 20190904
  Receipt Date: 20190904
  Transmission Date: 20191005
  Serious: No
  Sender: FDA-Public Use
  Company Number: US-SOFGEN PHARMACEUTICALS, LLC-2073998

PATIENT
  Age: 58 Year
  Sex: Female
  Weight: 68.04 kg

DRUGS (3)
  1. PROGESTERONE. [Suspect]
     Active Substance: PROGESTERONE
     Route: 048
     Dates: start: 20190808, end: 20190808
  2. TESTOSTERONE. [Concomitant]
     Active Substance: TESTOSTERONE
  3. ESTRADIOL. [Concomitant]
     Active Substance: ESTRADIOL

REACTIONS (3)
  - Heart rate increased [Recovered/Resolved]
  - Chest pain [Recovered/Resolved]
  - Feeling abnormal [Recovered/Resolved]

NARRATIVE: CASE EVENT DATE: 20190808
